FAERS Safety Report 4273485-1 (Version None)
Quarter: 2004Q1

REPORT INFORMATION
  Report Type: 
  Country: None (occurrence: None)
  Receive Date: 20040119
  Receipt Date: 20030616
  Transmission Date: 20041129
  Serious: Yes (Death)
  Sender: FDA-Public Use
  Company Number: US-GLAXOSMITHKLINE-A0413136A

PATIENT
  Age: 62 Year
  Sex: Male
  Weight: 80 kg

DRUGS (8)
  1. PAXIL [Suspect]
     Indication: DEPRESSION
     Route: 048
     Dates: start: 20010423
  2. TEMAZEPAM [Concomitant]
     Indication: SLEEP DISORDER
     Dosage: 1CAP AS REQUIRED
     Route: 048
  3. NEURONTIN [Concomitant]
     Dosage: 1TAB THREE TIMES PER DAY
     Route: 048
  4. KEPPRA [Concomitant]
     Dosage: 500MG TWICE PER DAY
     Route: 048
  5. HYDROCODONE APAP [Concomitant]
     Route: 048
  6. TRIAMTERENE AND HYDROCHLOROTHIAZIDE [Concomitant]
     Dosage: 25MG PER DAY
     Route: 048
  7. CARDURA [Concomitant]
     Dosage: 4MG PER DAY
     Route: 048
  8. PRILOSEC [Concomitant]
     Dosage: 20MG PER DAY
     Route: 048

REACTIONS (4)
  - AKATHISIA [None]
  - COMPLETED SUICIDE [None]
  - GUN SHOT WOUND [None]
  - TOXICOLOGIC TEST ABNORMAL [None]
